FAERS Safety Report 21400598 (Version 1)
Quarter: 2022Q4

REPORT INFORMATION
  Report Type: Other
  Country: ZW (occurrence: ZW)
  Receive Date: 20221003
  Receipt Date: 20221003
  Transmission Date: 20230113
  Serious: Yes (Other)
  Sender: FDA-Public Use
  Company Number: ZW-MACLEODS PHARMACEUTICALS US LTD-MAC2022037454

PATIENT

DRUGS (3)
  1. LAMIVUDINE\ZIDOVUDINE [Suspect]
     Active Substance: LAMIVUDINE\ZIDOVUDINE
     Indication: HIV infection
     Dosage: UNK, 1 COURSE, PRIOR TO CONCEPTION, EXPOSURE DURING FIRST TRIMESTER
     Route: 065
     Dates: start: 20190506
  2. DARUNAVIR [Suspect]
     Active Substance: DARUNAVIR
     Indication: HIV infection
     Dosage: UNK, 1 COURSE
     Route: 048
  3. RITONAVIR [Suspect]
     Active Substance: RITONAVIR
     Indication: HIV infection
     Dosage: UNK,1 COURSE, PRIOR TO CONCEPTION, EXPOSURE DURING FIRST TRIMESTER
     Route: 065
     Dates: start: 20190506

REACTIONS (2)
  - Abortion spontaneous [Unknown]
  - Maternal exposure during pregnancy [Unknown]

NARRATIVE: CASE EVENT DATE: 20220414
